FAERS Safety Report 18802301 (Version 2)
Quarter: 2021Q2

REPORT INFORMATION
  Report Type: Report from Study
  Country: None (occurrence: US)
  Receive Date: 20210128
  Receipt Date: 20210401
  Transmission Date: 20210717
  Serious: Yes (Hospitalization, Other)
  Sender: FDA-Public Use
  Company Number: US-ABBVIE-21K-163-3747426-00

PATIENT
  Age: 62 Year
  Sex: Female
  Weight: 129.39 kg

DRUGS (1)
  1. HUMIRA [Suspect]
     Active Substance: ADALIMUMAB
     Indication: PSORIASIS
     Route: 058

REACTIONS (4)
  - Knee arthroplasty [Recovering/Resolving]
  - Intracardiac thrombus [Unknown]
  - Dyspnoea [Unknown]
  - Exostosis [Unknown]

NARRATIVE: CASE EVENT DATE: 201902
